FAERS Safety Report 7933423 (Version 3)
Quarter: 2013Q3

REPORT INFORMATION
  Report Type: Spontaneous
  Country: US (occurrence: US)
  Receive Date: 20110506
  Receipt Date: 20130812
  Transmission Date: 20140515
  Serious: Yes (Hospitalization)
  Sender: FDA-Public Use
  Company Number: US-BAYER-2011-038234

PATIENT
  Age: 35 Year
  Sex: Female
  Weight: 67 kg

DRUGS (14)
  1. YASMIN [Suspect]
     Indication: CONTRACEPTION
     Dosage: UNK
     Route: 048
     Dates: start: 200609, end: 200901
  2. YASMIN [Suspect]
     Indication: ACNE
  3. YASMIN [Suspect]
     Indication: PREMENSTRUAL SYNDROME
  4. OCELLA [Suspect]
     Indication: CONTRACEPTION
     Dosage: UNK
     Route: 048
     Dates: start: 200901, end: 20090509
  5. OCELLA [Suspect]
     Indication: ACNE
  6. OCELLA [Suspect]
     Indication: PREMENSTRUAL SYNDROME
  7. ZYRTEC [Concomitant]
     Dosage: UNK UNK, PRN
  8. NASACORT [Concomitant]
  9. SINGULAIR [Concomitant]
     Indication: ASTHMA
     Dosage: 10 MG, UNK
     Route: 048
     Dates: start: 20090323
  10. FLONASE [Concomitant]
     Indication: ASTHMA
     Dosage: UNK UNK, BID
     Route: 055
     Dates: start: 20090323
  11. ALBUTEROL [Concomitant]
     Indication: ASTHMA
     Dosage: UNK
     Route: 055
     Dates: start: 20090323
  12. DOXYCYCLINE [Concomitant]
  13. ERY-TAB [Concomitant]
  14. AZITHROMYCIN [Concomitant]

REACTIONS (11)
  - Cerebrovascular accident [None]
  - Paradoxical embolism [None]
  - Osteoma [None]
  - Injury [None]
  - Cerebral infarction [None]
  - Speech disorder [None]
  - Memory impairment [None]
  - Headache [None]
  - Dysarthria [None]
  - VIIth nerve paralysis [None]
  - Headache [None]
